FAERS Safety Report 17258278 (Version 2)
Quarter: 2020Q1

REPORT INFORMATION
  Report Type: Spontaneous
  Country: PL (occurrence: PL)
  Receive Date: 20200110
  Receipt Date: 20200124
  Transmission Date: 20200409
  Serious: Yes (Other)
  Sender: FDA-Public Use
  Company Number: PL-PFIZER INC-2020006126

PATIENT
  Age: 81 Year
  Sex: Female

DRUGS (8)
  1. ONIREX [Concomitant]
     Active Substance: ZOLPIDEM TARTRATE
     Indication: SLEEP DISORDER THERAPY
     Dosage: 10 MG, PER DAY, BEFORE SLEEP
  2. ORTANOL 20 PLUS [Concomitant]
     Dosage: 20 MG, PER DAY
  3. DORETA [Concomitant]
     Active Substance: ACETAMINOPHEN\TRAMADOL HYDROCHLORIDE
     Dosage: 37.5 MG/325 MG, 2X PER DAY (2 DF 1X/DAY)
  4. VINORELBINE [Suspect]
     Active Substance: VINORELBINE TARTRATE
     Indication: NON-SMALL CELL LUNG CANCER
     Dosage: 40 MG, 3X PER WEEK
     Route: 048
  5. IRON [Concomitant]
     Active Substance: IRON
     Dosage: UNK
  6. VASTAN [Concomitant]
     Dosage: 20 MG, PER DAY
  7. ENCORTON [PREDNISONE] [Concomitant]
     Active Substance: PREDNISONE
     Dosage: 30 MG, PER DAY
  8. APO AMLO [Concomitant]
     Dosage: 5 MG, PER DAY

REACTIONS (2)
  - Granulocytopenia [Recovered/Resolved]
  - Anaemia [Recovered/Resolved]

NARRATIVE: CASE EVENT DATE: 201812
